FAERS Safety Report 7409226-6 (Version None)
Quarter: 2011Q2

REPORT INFORMATION
  Report Type: 
  Country: None (occurrence: None)
  Receive Date: 20110412
  Receipt Date: 20110407
  Transmission Date: 20111010
  Serious: Yes (Death, Hospitalization)
  Sender: FDA-Public Use
  Company Number: A0855757A

PATIENT
  Age: 66 Year
  Sex: Male
  Weight: 87.7 kg

DRUGS (1)
  1. ROSIGLITAZONE MALEATE [Suspect]
     Indication: DIABETES MELLITUS
     Route: 048

REACTIONS (3)
  - DEATH [None]
  - ORGAN FAILURE [None]
  - CARDIAC FAILURE ACUTE [None]
